FAERS Safety Report 4409960-6 (Version None)
Quarter: 2004Q3

REPORT INFORMATION
  Report Type: 
  Country: None (occurrence: None)
  Receive Date: 20040726
  Receipt Date: 20040709
  Transmission Date: 20050211
  Serious: Yes (Hospitalization, Disabling, Other)
  Sender: FDA-Public Use
  Company Number: 2004223219GB

PATIENT
  Age: 76 Year
  Sex: Male

DRUGS (3)
  1. DELTA-CORTEF [Suspect]
     Indication: PNEUMONIA
     Dosage: SEE IMAGE, ORAL
     Route: 048
  2. CIPROFLOXACIN [Suspect]
     Indication: PNEUMONIA
     Dosage: 500 MG, BID, ORAL
     Route: 048
  3. BENZYLPENICILLIN (BENZYLPENICILLIN) [Concomitant]

REACTIONS (1)
  - TENDON RUPTURE [None]
